FAERS Safety Report 9486519 (Version 1)
Quarter: 2013Q3

REPORT INFORMATION
  Report Type: Spontaneous
  Country: US (occurrence: US)
  Receive Date: 20130829
  Receipt Date: 20130829
  Transmission Date: 20140515
  Serious: Yes (Disabling)
  Sender: FDA-Public Use
  Company Number: US-SANOFI-AVENTIS-2013SA085661

PATIENT
  Sex: Female

DRUGS (2)
  1. LANTUS [Suspect]
     Indication: TYPE 2 DIABETES MELLITUS
     Dosage: 28-24 UNITS
     Route: 058
  2. NOVOLOG [Suspect]
     Route: 065

REACTIONS (10)
  - Disability [Unknown]
  - Stress [Unknown]
  - Fibromyalgia [Unknown]
  - Diverticulitis [Unknown]
  - Bursitis [Unknown]
  - Tendonitis [Unknown]
  - Back pain [Unknown]
  - Neoplasm [Unknown]
  - Loose tooth [Unknown]
  - Incorrect product storage [Unknown]
